FAERS Safety Report 24596991 (Version 2)
Quarter: 2025Q2

REPORT INFORMATION
  Report Type: Spontaneous
  Country: US (occurrence: US)
  Receive Date: 20241110
  Receipt Date: 20250513
  Transmission Date: 20250716
  Serious: No
  Sender: SANOFI AVENTIS
  Company Number: US-SA-2024SA310760

PATIENT
  Age: 63 Year
  Sex: Female
  Weight: 72 kg

DRUGS (27)
  1. REZUROCK [Suspect]
     Active Substance: BELUMOSUDIL
     Indication: Graft versus host disease
     Dosage: 200 MG, QD
     Route: 048
  2. ALENDRONATE [Concomitant]
     Active Substance: ALENDRONATE SODIUM
  3. ALLOPURINOL [Concomitant]
     Active Substance: ALLOPURINOL
  4. ATOVAQUONE [Concomitant]
     Active Substance: ATOVAQUONE
  5. AZITHROMYCIN [Concomitant]
     Active Substance: AZITHROMYCIN
  6. CALCIUM CARBONATE [Concomitant]
     Active Substance: CALCIUM CARBONATE
  7. CARVEDILOL [Concomitant]
     Active Substance: CARVEDILOL
  8. FAMOTIDINE [Concomitant]
     Active Substance: FAMOTIDINE
  9. FLUTICASONE FUROATE\SALMETEROL XINAFOATE [Concomitant]
     Active Substance: FLUTICASONE FUROATE\SALMETEROL XINAFOATE
  10. FOLIC ACID [Concomitant]
     Active Substance: FOLIC ACID
  11. FUROSEMIDE [Concomitant]
     Active Substance: FUROSEMIDE
  12. GABAPENTIN [Concomitant]
     Active Substance: GABAPENTIN
  13. LEVOTHYROXINE [Concomitant]
     Active Substance: LEVOTHYROXINE
  14. MIRTAZAPINE [Concomitant]
     Active Substance: MIRTAZAPINE
  15. MONTELUKAST SODIUM [Concomitant]
     Active Substance: MONTELUKAST SODIUM
  16. PENICILLIN [Concomitant]
     Active Substance: PENICILLIN
  17. PREDNISONE [Concomitant]
     Active Substance: PREDNISONE
  18. ROSUVASTATIN [Concomitant]
     Active Substance: ROSUVASTATIN
  19. VALACYCLOVIR [Concomitant]
     Active Substance: VALACYCLOVIR HYDROCHLORIDE
  20. VITAMIN D3 [Concomitant]
     Active Substance: CHOLECALCIFEROL
  21. XARELTO [Concomitant]
     Active Substance: RIVAROXABAN
  22. FLUTICASONE [Concomitant]
     Active Substance: FLUTICASONE
  23. NORTRIPTYLINE [Concomitant]
     Active Substance: NORTRIPTYLINE
  24. CHLORTHALIDONE [Concomitant]
     Active Substance: CHLORTHALIDONE
  25. CALCIUM [Concomitant]
     Active Substance: CALCIUM
  26. MONTELUKAST [Concomitant]
     Active Substance: MONTELUKAST
  27. TELMISARTAN [Concomitant]
     Active Substance: TELMISARTAN

REACTIONS (2)
  - Abdominal distension [Unknown]
  - Fatigue [Unknown]
